FAERS Safety Report 5899143-5 (Version None)
Quarter: 2008Q3

REPORT INFORMATION
  Report Type: 
  Country: None (occurrence: None)
  Receive Date: 20080902
  Receipt Date: 20080128
  Transmission Date: 20090109
  Serious: Yes (Death, Hospitalization)
  Sender: FDA-Public Use
  Company Number: KADN20080006

PATIENT
  Age: 2 Year
  Sex: Male

DRUGS (4)
  1. KADIAN [Suspect]
  2. VALPROATE SODIUM [Suspect]
  3. ACETAMINOPHEN AND CODEINE PHOSPHATE [Suspect]
  4. ACETAMINOPHEN AND CODEINE PHOSPHATE [Suspect]

REACTIONS (8)
  - DRUG TOXICITY [None]
  - GASTROINTESTINAL MOTILITY DISORDER [None]
  - OVERDOSE [None]
  - OXYGEN SATURATION DECREASED [None]
  - RESPIRATORY DEPRESSION [None]
  - RESPIRATORY RATE INCREASED [None]
  - SEDATION [None]
  - TOXICOLOGIC TEST ABNORMAL [None]
